FAERS Safety Report 6229683-0 (Version None)
Quarter: 2009Q2

REPORT INFORMATION
  Report Type: 
  Country: None (occurrence: None)
  Receive Date: 20090615
  Receipt Date: 20090515
  Transmission Date: 20091009
  Serious: Yes (Death, Hospitalization, Other)
  Sender: FDA-Public Use
  Company Number: US-BAXTER-2008BH005139

PATIENT
  Age: 55 Year
  Sex: Male
  Weight: 113 kg

DRUGS (9)
  1. HEPARIN SODIUM INJECTION [Suspect]
     Indication: PROPHYLAXIS
     Route: 065
     Dates: start: 20071001, end: 20080213
  2. HEPARIN SODIUM INJECTION [Suspect]
     Route: 065
     Dates: start: 20071001, end: 20080213
  3. HEPARIN SODIUM INJECTION [Suspect]
     Route: 065
     Dates: start: 20071001, end: 20080213
  4. HEPARIN SODIUM INJECTION [Suspect]
     Route: 065
     Dates: start: 20071001, end: 20080213
  5. IRON [Concomitant]
     Indication: DRUG USE FOR UNKNOWN INDICATION
     Route: 065
  6. COREG [Concomitant]
     Indication: DRUG USE FOR UNKNOWN INDICATION
     Route: 065
  7. FOSRENOL [Concomitant]
     Indication: DRUG USE FOR UNKNOWN INDICATION
     Route: 065
  8. INSULIN [Concomitant]
     Indication: DIABETES MELLITUS
     Route: 065
  9. EPOGEN [Concomitant]
     Indication: DRUG USE FOR UNKNOWN INDICATION
     Route: 065

REACTIONS (21)
  - ASTHENIA [None]
  - BACK PAIN [None]
  - CARDIAC ARREST [None]
  - CATHETER RELATED COMPLICATION [None]
  - CHILLS [None]
  - CONDITION AGGRAVATED [None]
  - COUGH [None]
  - DIARRHOEA [None]
  - DIZZINESS [None]
  - DYSPNOEA [None]
  - HYPERHIDROSIS [None]
  - HYPOTENSION [None]
  - MALAISE [None]
  - NAUSEA [None]
  - PALLOR [None]
  - PERITONITIS [None]
  - PYREXIA [None]
  - SEPTIC SHOCK [None]
  - THIRST [None]
  - VOMITING [None]
  - WHEEZING [None]
